FAERS Safety Report 18754512 (Version 1)
Quarter: 2021Q1

REPORT INFORMATION
  Report Type: Other
  Country: NZ (occurrence: NZ)
  Receive Date: 20210119
  Receipt Date: 20210119
  Transmission Date: 20210419
  Serious: Yes (Hospitalization, Other)
  Sender: FDA-Public Use
  Company Number: NZ-ACI HEALTHCARE LIMITED-2105507

PATIENT
  Age: 44 Year
  Sex: Male

DRUGS (6)
  1. LAMOTRIGINE. [Suspect]
     Active Substance: LAMOTRIGINE
     Route: 065
  2. CARBAMAZEPINE. [Suspect]
     Active Substance: CARBAMAZEPINE
     Route: 065
  3. LEVETIRACETAM. [Suspect]
     Active Substance: LEVETIRACETAM
     Indication: PRODUCT USED FOR UNKNOWN INDICATION
     Route: 065
  4. MELATONIN [Suspect]
     Active Substance: MELATONIN
     Route: 065
  5. CITALOPRAM [Suspect]
     Active Substance: CITALOPRAM HYDROBROMIDE
     Route: 065
  6. SODIUM VALPROATE [Suspect]
     Active Substance: VALPROATE SODIUM
     Route: 065

REACTIONS (1)
  - Subacute cutaneous lupus erythematosus [Recovering/Resolving]
